FAERS Safety Report 18180469 (Version 1)
Quarter: 2020Q3

REPORT INFORMATION
  Report Type: Spontaneous
  Country: GB (occurrence: GB)
  Receive Date: 20200821
  Receipt Date: 20200821
  Transmission Date: 20201103
  Serious: Yes (Life-Threatening)
  Sender: FDA-Public Use
  Company Number: GB-PFIZER INC-2020321764

PATIENT
  Age: 17 Year
  Sex: Female

DRUGS (5)
  1. CYCLIZINE [Concomitant]
     Active Substance: CYCLIZINE
  2. IBUPROFEN. [Concomitant]
     Active Substance: IBUPROFEN
  3. MIFEPRISTONE [Concomitant]
     Active Substance: MIFEPRISTONE
  4. PARACETAMOL [Concomitant]
     Active Substance: ACETAMINOPHEN
  5. MISOPROSTOL. [Suspect]
     Active Substance: MISOPROSTOL
     Indication: ABORTION INDUCED
     Dosage: 800 UG (STAT)
     Route: 060
     Dates: start: 20200728, end: 20200728

REACTIONS (6)
  - Tongue ulceration [Recovered/Resolved]
  - Off label use [Unknown]
  - Product use issue [Unknown]
  - Swollen tongue [Recovered/Resolved]
  - Glossodynia [Recovered/Resolved]
  - Product use in unapproved indication [Unknown]

NARRATIVE: CASE EVENT DATE: 20200728
